FAERS Safety Report 6726733-X (Version None)
Quarter: 2010Q2

REPORT INFORMATION
  Report Type: 
  Country: None (occurrence: None)
  Receive Date: 20100514
  Receipt Date: 20100506
  Transmission Date: 20101027
  Serious: Yes (Hospitalization)
  Sender: FDA-Public Use
  Company Number: NL-AMGEN-QUU410934

PATIENT
  Sex: Male

DRUGS (4)
  1. NEULASTA [Suspect]
     Indication: CHEMOTHERAPY
     Route: 065
  2. UNSPECIFIED ANTINEOPLASTIC AGENT [Concomitant]
  3. LORAZEPAM [Concomitant]
  4. DEXAMETHASONE [Concomitant]

REACTIONS (3)
  - ARTHRALGIA [None]
  - CARDIAC DISORDER [None]
  - CHEST PAIN [None]
